FAERS Safety Report 6834402-0 (Version None)
Quarter: 2010Q3

REPORT INFORMATION
  Report Type: 
  Country: None (occurrence: None)
  Receive Date: 20100712
  Receipt Date: 20070423
  Transmission Date: 20110219
  Serious: No
  Sender: FDA-Public Use
  Company Number: US-PFIZER INC-2007034066

PATIENT
  Sex: Male
  Weight: 63 kg

DRUGS (11)
  1. CHANTIX [Suspect]
     Indication: SMOKING CESSATION THERAPY
     Route: 048
     Dates: start: 20070420, end: 20070423
  2. MIRTAZAPINE [Concomitant]
     Indication: DEPRESSION
  3. ATIVAN [Concomitant]
  4. FAMOTIDINE [Concomitant]
  5. ALL OTHER THERAPEUTIC PRODUCTS [Concomitant]
  6. NORVASC [Concomitant]
  7. AMBIEN [Concomitant]
  8. PATANOL [Concomitant]
  9. ACETYLSALICYLIC ACID [Concomitant]
  10. BENADRYL [Concomitant]
  11. CENTRUM SILVER [Concomitant]

REACTIONS (3)
  - DIZZINESS [None]
  - FEELING ABNORMAL [None]
  - MALAISE [None]
